FAERS Safety Report 8016198-2 (Version None)
Quarter: 2011Q4

REPORT INFORMATION
  Report Type: 
  Country: None (occurrence: None)
  Receive Date: 20111230
  Receipt Date: 20111219
  Transmission Date: 20120403
  Serious: Yes (Hospitalization)
  Sender: FDA-Public Use
  Company Number: PHHO2011JP020571

PATIENT
  Sex: Male
  Weight: 56 kg

DRUGS (9)
  1. CANDESARTAN CILEXETIL [Concomitant]
     Indication: HYPERTENSION
     Dosage: 16 MG, UNK
     Route: 048
     Dates: start: 20060622
  2. ISOSORBIDE DINITRATE [Concomitant]
     Indication: HYPERTENSION
     Dosage: 40 MG, UNK
     Route: 062
     Dates: start: 20030807, end: 20111120
  3. SENNOSIDE [Concomitant]
     Indication: CONSTIPATION
     Dosage: UNK
     Route: 048
     Dates: start: 20111007
  4. NAPAGELN [Concomitant]
     Indication: BACK PAIN
     Dosage: UNK
     Route: 062
     Dates: start: 20111102
  5. ADALAT [Concomitant]
     Indication: HYPERTENSION
     Dosage: 40 MG, UNK
     Route: 048
     Dates: start: 20070706
  6. QAB149 [Suspect]
     Indication: CHRONIC OBSTRUCTIVE PULMONARY DISEASE
     Dosage: 150 UG, QD
     Dates: start: 20110712, end: 20111119
  7. GASMOTIN [Concomitant]
     Indication: NAUSEA
     Dosage: 5 MG, UNK
     Route: 048
     Dates: start: 20111007
  8. SAWATENE [Concomitant]
     Indication: CHRONIC OBSTRUCTIVE PULMONARY DISEASE
     Dosage: 250 MG, UNK
     Route: 048
     Dates: start: 20110810, end: 20111120
  9. KETOPROFEN [Concomitant]
     Indication: BACK PAIN
     Dosage: 20 MG, UNK
     Route: 062
     Dates: start: 20111102, end: 20111120

REACTIONS (6)
  - PLEURAL EFFUSION [None]
  - DIVERTICULITIS [None]
  - BLOOD ALBUMIN DECREASED [None]
  - ANAEMIA [None]
  - CARDIAC FAILURE [None]
  - PNEUMONIA [None]
